FAERS Safety Report 7386352-1 (Version None)
Quarter: 2011Q1

REPORT INFORMATION
  Report Type: 
  Country: None (occurrence: None)
  Receive Date: 20110331
  Receipt Date: 20110317
  Transmission Date: 20110831
  Serious: Yes (Hospitalization)
  Sender: FDA-Public Use
  Company Number: PHHY2011US22947

PATIENT
  Sex: Male

DRUGS (1)
  1. EXJADE [Suspect]
     Indication: NEOPLASM
     Dosage: 500 MG
     Route: 048

REACTIONS (4)
  - MULTI-ORGAN FAILURE [None]
  - FATIGUE [None]
  - EATING DISORDER [None]
  - ASTHENIA [None]
